FAERS Safety Report 16262242 (Version 3)
Quarter: 2019Q2

REPORT INFORMATION
  Report Type: Report from Study
  Country: US (occurrence: US)
  Receive Date: 20190501
  Receipt Date: 20190621
  Transmission Date: 20190711
  Serious: Yes (Other)
  Sender: FDA-Public Use
  Company Number: US-MALLINCKRODT-T201901681

PATIENT
  Sex: Female
  Weight: 145 kg

DRUGS (14)
  1. METOPROLOL TARTRATE. [Concomitant]
     Active Substance: METOPROLOL TARTRATE
     Indication: PRODUCT USED FOR UNKNOWN INDICATION
     Dosage: 50 MG, UNK
     Route: 065
  2. BUSPIRONE HCL [Concomitant]
     Active Substance: BUSPIRONE HYDROCHLORIDE
     Indication: PRODUCT USED FOR UNKNOWN INDICATION
     Dosage: 15 MG, UNK
     Route: 065
  3. REPOSITORY CORTICOTROPIN INJECTION [Suspect]
     Active Substance: CORTICOTROPIN
     Indication: FOCAL SEGMENTAL GLOMERULOSCLEROSIS
     Dosage: UNK
     Route: 058
     Dates: start: 20130921
  4. REPOSITORY CORTICOTROPIN INJECTION [Suspect]
     Active Substance: CORTICOTROPIN
     Dosage: 10 UNITS, 0.12 ML, TWICE WEEKLY
     Route: 058
     Dates: start: 20190423, end: 2019
  5. VITAMIN D2 [Concomitant]
     Active Substance: ERGOCALCIFEROL
     Indication: PRODUCT USED FOR UNKNOWN INDICATION
     Dosage: 50000 UNITS, UNK
     Route: 065
  6. DOXAZOSIN MESYLATE. [Concomitant]
     Active Substance: DOXAZOSIN MESYLATE
     Indication: PRODUCT USED FOR UNKNOWN INDICATION
     Dosage: 2 MG, UNK
     Route: 065
  7. NEURONTIN [Concomitant]
     Active Substance: GABAPENTIN
     Indication: PRODUCT USED FOR UNKNOWN INDICATION
     Dosage: 300 MG, UNK
     Route: 065
  8. CYMBALTA [Concomitant]
     Active Substance: DULOXETINE HYDROCHLORIDE
     Indication: PRODUCT USED FOR UNKNOWN INDICATION
     Dosage: 60 MG, UNK
     Route: 065
  9. REPOSITORY CORTICOTROPIN INJECTION [Suspect]
     Active Substance: CORTICOTROPIN
     Dosage: 10 UNITS, 0.12 ML, WEEKLY (TUESDAY)
     Route: 058
     Dates: start: 20190604
  10. TRAMADOL HCL [Concomitant]
     Active Substance: TRAMADOL HYDROCHLORIDE
     Indication: PRODUCT USED FOR UNKNOWN INDICATION
     Dosage: 50 MG, UNK
     Route: 065
  11. DILTIAZEM. [Concomitant]
     Active Substance: DILTIAZEM
     Indication: PRODUCT USED FOR UNKNOWN INDICATION
     Dosage: UNK
     Route: 065
  12. REPOSITORY CORTICOTROPIN INJECTION [Suspect]
     Active Substance: CORTICOTROPIN
     Indication: NEPHROTIC SYNDROME
     Dosage: 40 UNITS/0.5 ML, 2 TIMES PER WEEK
     Route: 058
  13. REPOSITORY CORTICOTROPIN INJECTION [Suspect]
     Active Substance: CORTICOTROPIN
     Dosage: 20 UNITS/0.25 ML, 2 TIMES PER WEEK
     Route: 058
  14. CYCLOBENZAPRINE HCL [Concomitant]
     Active Substance: CYCLOBENZAPRINE HYDROCHLORIDE
     Indication: PRODUCT USED FOR UNKNOWN INDICATION
     Dosage: 5 MG, UNK
     Route: 065

REACTIONS (13)
  - Disease progression [Recovering/Resolving]
  - Weight increased [Unknown]
  - Blood glucose decreased [Recovering/Resolving]
  - Feeling abnormal [Unknown]
  - Mood altered [Not Recovered/Not Resolved]
  - Anxiety [Recovering/Resolving]
  - Focal segmental glomerulosclerosis [Recovering/Resolving]
  - Dysmenorrhoea [Recovered/Resolved]
  - Menstruation irregular [Recovered/Resolved]
  - Fatigue [Unknown]
  - Malaise [Unknown]
  - Musculoskeletal discomfort [Unknown]
  - Depression [Recovering/Resolving]
